FAERS Safety Report 23226599 (Version 1)
Quarter: 2023Q4

REPORT INFORMATION
  Report Type: Spontaneous
  Country: FR (occurrence: FR)
  Receive Date: 20231124
  Receipt Date: 20231124
  Transmission Date: 20240110
  Serious: Yes (Hospitalization)
  Sender: FDA-Public Use
  Company Number: None

PATIENT
  Age: 89 Year
  Sex: Female
  Weight: 73.7 kg

DRUGS (15)
  1. DULOXETINE [Suspect]
     Active Substance: DULOXETINE
     Indication: Product used for unknown indication
     Dosage: UNIT DOSE:60MG,FREQUENCY IMTE:1 TOTAL,DURATION:1 DAYS
     Dates: start: 20230720, end: 20230720
  2. VALSARTAN [Suspect]
     Active Substance: VALSARTAN
     Indication: Hypertension
     Dosage: UNIT DOSE:160MG,FREQUENCY TIME:1 TOTAL
  3. PERINDOPRIL [Suspect]
     Active Substance: PERINDOPRIL
     Indication: Product used for unknown indication
     Dosage: UNIT DOSE:8MG,FREQUENCY TIME:1 TOTAL,DURATION:1 DAYS
     Dates: start: 20230720, end: 20230720
  4. PANTOPRAZOLE [Suspect]
     Active Substance: PANTOPRAZOLE
     Indication: Product used for unknown indication
     Dosage: UNIT DOSE:20MG,FREQUENNCY TIME :1 TOTAL,DURATION:1 DAYS
     Dates: start: 20230720, end: 20230720
  5. SPIRONOLACTONE [Suspect]
     Active Substance: SPIRONOLACTONE
     Indication: Product used for unknown indication
     Dosage: UNIT DOSE:25MG,FREQUENCY TIME:1 TOTAL,DURATION:1 DAY
     Dates: start: 20230720, end: 20230720
  6. GABAPENTIN [Suspect]
     Active Substance: GABAPENTIN
     Indication: Product used for unknown indication
     Dosage: UNIT DOSE:100MG,FREQUENCY TIME:1 TOTAL
     Dates: start: 20230720, end: 20230720
  7. FUROSEMIDE [Suspect]
     Active Substance: FUROSEMIDE
     Indication: Hypertension
     Dosage: UNIT DOSE:40MG,FREQUENCY TIME:1 TOTAL,DURATION:1 DAYS
  8. FERROUS SULFATE [Suspect]
     Active Substance: FERROUS SULFATE
     Indication: Product used for unknown indication
     Dosage: UNIT DOSE:80MG,FREQUENCY TIME:1 TOTAL,DURATION:1 DAYS
     Dates: start: 20230720, end: 20230720
  9. HYDROCHLOROTHIAZIDE [Suspect]
     Active Substance: HYDROCHLOROTHIAZIDE
     Indication: Hypertension
     Dosage: UNIT DOSE:25MG,FREQUENCY TIME:1 TOTAL
  10. TIAPRIDE HYDROCHLORIDE [Suspect]
     Active Substance: TIAPRIDE HYDROCHLORIDE
     Indication: Product used for unknown indication
     Dosage: UNIT DOSE:50MG,FREQUENCY TIME:1 TOTAL,DURATION:1 DAYS
     Dates: start: 20230720, end: 20230720
  11. OXAZEPAM [Suspect]
     Active Substance: OXAZEPAM
     Indication: Behaviour disorder
     Dosage: UNIT DOSE:10MG,FREQUENCY TIME:! DAYS
  12. XARELTO [Suspect]
     Active Substance: RIVAROXABAN
     Indication: Product used for unknown indication
     Dosage: UNIT DOSE:10MG,FREQUENCY TIME:! TOTAL, DURATION:1 DAYS
     Dates: start: 20230720, end: 20230720
  13. ELIQUIS [Concomitant]
     Active Substance: APIXABAN
     Indication: Product used for unknown indication
  14. OMEPRAZOLE [Concomitant]
     Active Substance: OMEPRAZOLE
     Indication: Product used for unknown indication
  15. POTASSIUM CHLORIDE [Concomitant]
     Active Substance: POTASSIUM CHLORIDE
     Indication: Product used for unknown indication

REACTIONS (3)
  - Wrong patient [Recovered/Resolved]
  - Somnolence [Recovered/Resolved]
  - Hypotension [Recovered/Resolved]

NARRATIVE: CASE EVENT DATE: 20230720
